FAERS Safety Report 9853375 (Version 1)
Quarter: 2014Q1

REPORT INFORMATION
  Report Type: Spontaneous
  Country: AU (occurrence: AU)
  Receive Date: 20140129
  Receipt Date: 20140129
  Transmission Date: 20141002
  Serious: Yes (Death)
  Sender: FDA-Public Use
  Company Number: AU-MYLANLABS-2014S1001571

PATIENT
  Age: 53 Year
  Sex: Female

DRUGS (7)
  1. EPINEPHRINE [Suspect]
     Indication: HYPOTENSION
     Dosage: 0.05-0.25UG/KG/MIN
  2. PROPOFOL [Suspect]
     Indication: SEDATION
     Dosage: 20 - 65UG/KG/MIN
  3. PROPOFOL [Suspect]
     Indication: SEDATION
     Dosage: 85 - 95UG/KG/MIN
  4. MORPHINE [Concomitant]
  5. MIDAZOLAM [Concomitant]
  6. NORADRENALINE [Concomitant]
  7. ADRENALINE [Concomitant]

REACTIONS (6)
  - Drug ineffective [Fatal]
  - Propofol infusion syndrome [Fatal]
  - Drug interaction [Fatal]
  - Metabolic acidosis [Fatal]
  - Hyperkalaemia [Fatal]
  - Blood triglycerides increased [Fatal]
